FAERS Safety Report 21488163 (Version 1)
Quarter: 2022Q4

REPORT INFORMATION
  Report Type: Spontaneous
  Country: US (occurrence: None)
  Receive Date: 20221020
  Receipt Date: 20221020
  Transmission Date: 20230113
  Serious: Yes (Hospitalization)
  Sender: FDA-Public Use
  Company Number: None

PATIENT
  Age: 57 Year
  Sex: Male
  Weight: 113.9 kg

DRUGS (3)
  1. LOMUSTINE [Suspect]
     Active Substance: LOMUSTINE
     Dates: end: 20210309
  2. PROCARBAZINE [Suspect]
     Active Substance: PROCARBAZINE
     Dates: end: 20210309
  3. VINCRISTINE SULFATE [Suspect]
     Active Substance: VINCRISTINE SULFATE
     Dates: end: 20210127

REACTIONS (4)
  - Pancytopenia [None]
  - Chest pain [None]
  - Dyspnoea [None]
  - Myelodysplastic syndrome [None]

NARRATIVE: CASE EVENT DATE: 20220801
